FAERS Safety Report 12159011 (Version 4)
Quarter: 2017Q2

REPORT INFORMATION
  Report Type: Spontaneous
  Country: TW (occurrence: TW)
  Receive Date: 20160308
  Receipt Date: 20170414
  Transmission Date: 20170829
  Serious: Yes (Hospitalization, Other)
  Sender: FDA-Public Use
  Company Number: TW-AMGEN-TWNSP2016014341

PATIENT
  Age: 43 Year
  Sex: Male

DRUGS (3)
  1. ENBREL [Suspect]
     Active Substance: ETANERCEPT
     Indication: PSORIATIC ARTHROPATHY
     Dosage: 50 MG, WEEKLY (QW)
     Route: 058
     Dates: start: 20150603, end: 20160217
  2. ENBREL [Suspect]
     Active Substance: ETANERCEPT
     Dosage: 50 MG, WEEKLY(QW)
     Route: 058
     Dates: end: 20170224
  3. ENBREL [Suspect]
     Active Substance: ETANERCEPT
     Dosage: 50 MG, WEEKLY (QW)
     Route: 058
     Dates: start: 20170405

REACTIONS (7)
  - Productive cough [Unknown]
  - Sputum purulent [Unknown]
  - Red blood cell sedimentation rate increased [Unknown]
  - Body temperature increased [Unknown]
  - C-reactive protein increased [Unknown]
  - Anal abscess [Unknown]
  - Hepatitis B [Not Recovered/Not Resolved]

NARRATIVE: CASE EVENT DATE: 2016
